FAERS Safety Report 16758645 (Version 1)
Quarter: 2019Q3

REPORT INFORMATION
  Report Type: Spontaneous
  Country: FR (occurrence: FR)
  Receive Date: 20190830
  Receipt Date: 20190830
  Transmission Date: 20191005
  Serious: Yes (Hospitalization)
  Sender: FDA-Public Use
  Company Number: FR-TEVA-2019-FR-1099961

PATIENT
  Age: 36 Year
  Sex: Male

DRUGS (3)
  1. TUSSIDANE 1,5 MG/ML, SIROP [Suspect]
     Active Substance: DEXTROMETHORPHAN HYDROBROMIDE
     Indication: COUGH
     Route: 048
     Dates: start: 20190613, end: 20190620
  2. IBUPROFENE [Suspect]
     Active Substance: IBUPROFEN
     Indication: INFECTION
     Route: 048
     Dates: start: 20190613, end: 20190620
  3. AMOXICILLINE [Suspect]
     Active Substance: AMOXICILLIN
     Indication: INFECTION
     Route: 048
     Dates: start: 20190613, end: 20190620

REACTIONS (2)
  - Rash maculo-papular [Recovered/Resolved]
  - Pruritus [Recovered/Resolved]

NARRATIVE: CASE EVENT DATE: 20190620
